FAERS Safety Report 4654516-3 (Version None)
Quarter: 2005Q2

REPORT INFORMATION
  Report Type: 
  Country: None (occurrence: None)
  Receive Date: 20050504
  Receipt Date: 20050504
  Transmission Date: 20051028
  Serious: Yes (Hospitalization)
  Sender: FDA-Public Use
  Company Number: None

PATIENT
  Age: 61 Year
  Sex: Male
  Weight: 88.7 kg

DRUGS (7)
  1. SYNERCID [Suspect]
     Indication: STAPHYLOCOCCAL INFECTION
     Dosage: 600 MG Q8H INTRAVENOU
     Route: 042
     Dates: start: 20050408, end: 20050428
  2. NOVOLIN N [Concomitant]
  3. COUMADIN [Concomitant]
  4. LISINOPRIL [Concomitant]
  5. COREG [Concomitant]
  6. BUMETANIDE [Concomitant]
  7. R INSULIN [Concomitant]

REACTIONS (4)
  - DRUG TOXICITY [None]
  - LABYRINTHITIS [None]
  - NYSTAGMUS [None]
  - PYREXIA [None]
